FAERS Safety Report 7433755-2 (Version None)
Quarter: 2011Q2

REPORT INFORMATION
  Report Type: 
  Country: None (occurrence: None)
  Receive Date: 20110424
  Receipt Date: 20110413
  Transmission Date: 20111010
  Serious: No
  Sender: FDA-Public Use
  Company Number: US-ROXANE LABORATORIES, INC.-2011-RO-00554RO

PATIENT
  Sex: Male

DRUGS (2)
  1. MORPHINE [Suspect]
     Dosage: 240 MG
     Route: 048
  2. METHADONE [Suspect]
     Dosage: 80 MG
     Route: 048

REACTIONS (1)
  - DRUG DISPENSING ERROR [None]
